FAERS Safety Report 9168359 (Version 1)
Quarter: 2013Q1

REPORT INFORMATION
  Report Type: Spontaneous
  Country: US (occurrence: US)
  Receive Date: 20130318
  Receipt Date: 20130318
  Transmission Date: 20140127
  Serious: Yes (Other)
  Sender: FDA-Public Use
  Company Number: US-SANOFI-AVENTIS-2013SA027041

PATIENT
  Age: 68 Year
  Sex: Male

DRUGS (2)
  1. LANTUS [Suspect]
     Dosage: DOSE:14 UNIT(S)
  2. LANTUS [Suspect]
     Dosage: DOSE:30 UNIT(S)

REACTIONS (5)
  - Aggression [Unknown]
  - Delusion [Unknown]
  - Pruritus [Unknown]
  - Lip swelling [Unknown]
  - Rash [Unknown]
